FAERS Safety Report 8372552-0 (Version None)
Quarter: 2012Q2

REPORT INFORMATION
  Report Type: 
  Country: None (occurrence: None)
  Receive Date: 20120521
  Receipt Date: 20120515
  Transmission Date: 20120825
  Serious: Yes (Hospitalization, Other)
  Sender: FDA-Public Use
  Company Number: PHHY2011BR110577

PATIENT
  Sex: Male
  Weight: 98 kg

DRUGS (20)
  1. FUROSEMIDE [Concomitant]
     Indication: DIURETIC THERAPY
     Dosage: 40 MG, QD
     Route: 048
  2. LOSARTAN POTASSIUM [Concomitant]
     Indication: MUSCLE SPASMS
     Dosage: 50 MG, QD
     Route: 048
  3. OMEPRAZOLE [Concomitant]
     Indication: GASTRIC HAEMORRHAGE
     Dosage: 20 MG, QD
     Route: 048
  4. OMEPRAZOLE [Concomitant]
     Indication: GASTRITIS
  5. ALBUTEROL SULFATE AUTOHALER [Concomitant]
     Indication: DYSPNOEA
     Dosage: 2 MG, Q8H
     Route: 048
  6. METICORTEN [Concomitant]
     Indication: EMPHYSEMA
     Dosage: 20 MG, QD
     Route: 048
  7. ALBUTEROL [Concomitant]
     Dosage: 2 MG, 1 INHALATION EVERY 6 OR 4 HOURS
  8. FORMOTEROL FUMARATE [Suspect]
     Indication: EMPHYSEMA
     Dosage: 1 INHALATION OF EACH TREATMENT AT 08.00, 15.00 AND 23.00
  9. ASPIRIN [Concomitant]
     Indication: ANTICOAGULANT THERAPY
     Dosage: 2 DF, QD
     Route: 048
  10. ISOSORBIDE MONONITRATE [Concomitant]
     Indication: CARDIAC DISORDER
     Dosage: 20 MG, Q12H
     Route: 048
  11. DILTIAZEM [Concomitant]
     Indication: MUSCLE DISORDER
     Dosage: 60 MG, Q8H
     Route: 048
  12. FUROSEMIDE [Concomitant]
     Indication: FLATULENCE
  13. ATROVENT [Concomitant]
     Indication: DYSPNOEA
     Dosage: 1 NEBULIZATION EVERY FOUR HOURS
  14. FORMOTEROL FUMARATE [Suspect]
     Indication: CHRONIC OBSTRUCTIVE PULMONARY DISEASE
  15. BEROTEC [Concomitant]
     Indication: EMPHYSEMA
     Dosage: 5 MG, 1 INHALATION EVERY FOUR HOURS
  16. DILTIAZEM [Concomitant]
     Indication: CARDIAC DISORDER
  17. WARFARIN SODIUM [Concomitant]
     Indication: ANTICOAGULANT THERAPY
     Dosage: 5 MG, QD
     Route: 048
  18. BANITRID [Concomitant]
     Indication: CARDIAC DISORDER
     Dosage: 1 DF, BID
     Route: 048
  19. BAMIFIX [Concomitant]
     Dosage: 600 MG, Q12H
     Route: 048
  20. LOSARTAN POTASSIUM [Concomitant]
     Indication: CARDIOVASCULAR DISORDER

REACTIONS (9)
  - OEDEMA PERIPHERAL [None]
  - DYSPNOEA [None]
  - HYPOAESTHESIA [None]
  - DIARRHOEA [None]
  - INFLUENZA [None]
  - MUSCLE SPASMS [None]
  - INFARCTION [None]
  - AMNESIA [None]
  - FATIGUE [None]
